FAERS Safety Report 23425154 (Version 1)
Quarter: 2024Q1

REPORT INFORMATION
  Report Type: Spontaneous
  Country: FR (occurrence: None)
  Receive Date: 20240121
  Receipt Date: 20240121
  Transmission Date: 20240410
  Serious: Yes (Hospitalization)
  Sender: FDA-Public Use
  Company Number: 2024A014084

PATIENT
  Age: 81 Year
  Sex: Female

DRUGS (2)
  1. DAPAGLIFLOZIN [Suspect]
     Active Substance: DAPAGLIFLOZIN
     Indication: Cardiac disorder
     Route: 048
     Dates: end: 20231123
  2. SPIRONOLACTONE [Suspect]
     Active Substance: SPIRONOLACTONE
     Indication: Atrial fibrillation
     Route: 048
     Dates: end: 20231123

REACTIONS (1)
  - Acidosis hyperchloraemic [Not Recovered/Not Resolved]

NARRATIVE: CASE EVENT DATE: 20231123
